FAERS Safety Report 9402841 (Version 1)
Quarter: 2013Q3

REPORT INFORMATION
  Report Type: Spontaneous
  Country: US (occurrence: None)
  Receive Date: 20130715
  Receipt Date: 20130715
  Transmission Date: 20140515
  Serious: No
  Sender: FDA-Public Use
  Company Number: None

PATIENT
  Age: 79 Year
  Sex: Female
  Weight: 63.5 kg

DRUGS (1)
  1. HYDROXYCHLOROQUINE [Suspect]
     Indication: OSTEOARTHRITIS
     Route: 048

REACTIONS (6)
  - Ataxia [None]
  - Dizziness [None]
  - Headache [None]
  - Abdominal pain [None]
  - Nausea [None]
  - Vomiting [None]
